FAERS Safety Report 10157926 (Version 1)
Quarter: 2014Q2

REPORT INFORMATION
  Report Type: Spontaneous
  Country: US (occurrence: US)
  Receive Date: 20140507
  Receipt Date: 20140507
  Transmission Date: 20141212
  Serious: Yes (Other)
  Sender: FDA-Public Use
  Company Number: US-TEVA-480076USA

PATIENT
  Age: 32 Year
  Sex: Female
  Weight: 52.21 kg

DRUGS (4)
  1. PLAN B ONE-STEP [Suspect]
     Indication: POST COITAL CONTRACEPTION
     Dosage: 1.5 MILLIGRAM DAILY;
     Route: 048
     Dates: start: 20140412, end: 20140412
  2. LO LOESTRIN [Concomitant]
     Indication: CONTRACEPTION
  3. SINGULAIR [Concomitant]
     Indication: ASTHMA
  4. ZYRTEC [Concomitant]
     Indication: HYPERSENSITIVITY

REACTIONS (5)
  - Pregnancy after post coital contraception [Unknown]
  - Breast swelling [Not Recovered/Not Resolved]
  - Metrorrhagia [Recovered/Resolved]
  - Breast pain [Not Recovered/Not Resolved]
  - Maternal exposure before pregnancy [Unknown]
